FAERS Safety Report 6022036-X (Version None)
Quarter: 2008Q4

REPORT INFORMATION
  Report Type: 
  Country: None (occurrence: None)
  Receive Date: 20081223
  Receipt Date: 20081215
  Transmission Date: 20090506
  Serious: Yes (Other)
  Sender: FDA-Public Use
  Company Number: 2008S1020240

PATIENT
  Age: 40 Year
  Sex: Female
  Weight: 45.8133 kg

DRUGS (4)
  1. DIAZEPAM [Suspect]
     Indication: PANIC ATTACK
     Dosage: ORAL
     Route: 048
     Dates: end: 20080801
  2. DIAZEPAM [Suspect]
     Indication: PANIC ATTACK
     Dosage: 15 MG;DAILY;ORAL, 17.5 MG;DAILY;ORAL
     Route: 048
     Dates: start: 20080801, end: 20081117
  3. DIAZEPAM [Suspect]
     Indication: PANIC ATTACK
     Dosage: 15 MG;DAILY;ORAL, 17.5 MG;DAILY;ORAL
     Route: 048
     Dates: start: 20081117
  4. FOLATE (7.5 MG) [Suspect]
     Indication: MENORRHAGIA
     Dosage: 7.5 MG;X1;ORAL
     Route: 048
     Dates: start: 20081107, end: 20081107

REACTIONS (21)
  - BURNING SENSATION [None]
  - CHILLS [None]
  - CONDITION AGGRAVATED [None]
  - CONVERSION DISORDER [None]
  - DEPRESSION [None]
  - DIARRHOEA [None]
  - DRY MOUTH [None]
  - FEELING JITTERY [None]
  - LOSS OF CONSCIOUSNESS [None]
  - MENORRHAGIA [None]
  - MIDDLE INSOMNIA [None]
  - NERVOUSNESS [None]
  - OROPHARYNGEAL PAIN [None]
  - PALPITATIONS [None]
  - POLLAKIURIA [None]
  - RESTLESSNESS [None]
  - SUICIDAL IDEATION [None]
  - TACHYPHRENIA [None]
  - TREMOR [None]
  - VERTIGO [None]
  - WEIGHT DECREASED [None]
